FAERS Safety Report 9648670 (Version 1)
Quarter: 2013Q4

REPORT INFORMATION
  Report Type: Spontaneous
  Country: US (occurrence: None)
  Receive Date: 20131025
  Receipt Date: 20131025
  Transmission Date: 20140711
  Serious: No
  Sender: FDA-Public Use
  Company Number: None

PATIENT
  Age: 73 Year
  Sex: Female
  Weight: 72.58 kg

DRUGS (5)
  1. PROTOPIC [Suspect]
     Dosage: SAMPLE TUBES; TWICE DLY INSIDE CHEEK; PUT ON MY FINGER THEN INSIDE MY LEFT CHEEK
     Dates: start: 20130807, end: 20130913
  2. NATURE  THROID [Concomitant]
  3. DAILY SUPPLEMENT WITH VIT/ MINERALS [Concomitant]
  4. NUTRILITE [Concomitant]
  5. GLUCOSAMINE [Concomitant]

REACTIONS (4)
  - Throat irritation [None]
  - Oesophageal irritation [None]
  - Epigastric discomfort [None]
  - Drug ineffective [None]
